FAERS Safety Report 7866017-X (Version None)
Quarter: 2011Q4

REPORT INFORMATION
  Report Type: 
  Country: None (occurrence: None)
  Receive Date: 20111028
  Receipt Date: 20110407
  Transmission Date: 20120403
  Serious: No
  Sender: FDA-Public Use
  Company Number: US-GLAXOSMITHKLINE-A0921837A

PATIENT
  Age: 84 Year
  Sex: Female
  Weight: 60.5 kg

DRUGS (5)
  1. ADVAIR DISKUS 100/50 [Suspect]
     Indication: PRODUCT USED FOR UNKNOWN INDICATION
     Dosage: 1PUFF TWICE PER DAY
     Route: 055
     Dates: start: 20110301, end: 20110406
  2. COUMADIN [Concomitant]
     Route: 048
     Dates: start: 20101025
  3. ALPRAZOLAM [Concomitant]
     Route: 048
     Dates: start: 20110125
  4. NASONEX [Concomitant]
     Dates: start: 20100916
  5. SYNTHROID [Concomitant]
     Route: 048
     Dates: start: 20110119

REACTIONS (1)
  - DYSPNOEA [None]
